FAERS Safety Report 8305648-X (Version None)
Quarter: 2012Q2

REPORT INFORMATION
  Report Type: 
  Country: None (occurrence: None)
  Receive Date: 20120423
  Receipt Date: 20120416
  Transmission Date: 20120825
  Serious: Yes (Hospitalization, Other)
  Sender: FDA-Public Use
  Company Number: US-PFIZER INC-2012067129

PATIENT
  Age: 72 Year
  Sex: Female

DRUGS (17)
  1. OXYBUTYNIN [Concomitant]
     Dosage: UNK
  2. NEXIUM [Concomitant]
     Dosage: UNK
  3. PREDNISONE [Suspect]
     Dosage: 5 MG, 1X/DAY
  4. CYMBALTA [Suspect]
     Dosage: 60 MG, 1X/DAY
  5. PRAMIPEXOLE [Concomitant]
     Dosage: UNK
  6. CALCIUM [Concomitant]
     Dosage: UNK
  7. HYDROMORPHONE [Concomitant]
     Dosage: UNK
  8. ORENCIA [Suspect]
     Indication: RHEUMATOID ARTHRITIS
     Dosage: 750 MG, 1/2 WEEK
     Route: 042
     Dates: start: 20110801
  9. ARAVA [Suspect]
     Dosage: 10 MG, 1X/DAY
  10. AMILORIDE [Concomitant]
     Dosage: UNK
  11. DILAUDID [Suspect]
     Dosage: UNK
  12. CALCITONIN [Concomitant]
     Dosage: UNK
  13. ALENDRONATE SODIUM [Concomitant]
     Dosage: UNK
  14. NAPROXEN [Concomitant]
     Dosage: UNK
  15. ACETAMINOPHEN [Concomitant]
     Dosage: UNK
  16. LYRICA [Suspect]
     Dosage: 200 MG, 1X/DAY
  17. ATENOLOL [Concomitant]
     Dosage: UNK

REACTIONS (15)
  - HAEMOGLOBIN DECREASED [None]
  - ABDOMINAL PAIN [None]
  - VOMITING [None]
  - INFLAMMATION [None]
  - WEIGHT DECREASED [None]
  - URINARY TRACT INFECTION [None]
  - INTERVERTEBRAL DISC DISORDER [None]
  - CLOSTRIDIAL INFECTION [None]
  - BURSITIS [None]
  - VISUAL IMPAIRMENT [None]
  - DIARRHOEA [None]
  - NAUSEA [None]
  - WOUND COMPLICATION [None]
  - SLEEP APNOEA SYNDROME [None]
  - ASTHENIA [None]
